FAERS Safety Report 8806780 (Version 1)
Quarter: 2012Q4

REPORT INFORMATION
  Report Type: 
  Country: US (occurrence: US)
  Receive Date: 20120925
  Receipt Date: 20120925
  Transmission Date: 20130627
  Serious: Yes (Death, Other)
  Sender: FDA-Public Use
  Company Number: US-ROCHE-1126184

PATIENT
  Sex: Male

DRUGS (2)
  1. AVASTIN [Suspect]
     Indication: PRODUCT USED FOR UNKNOWN INDICATION
     Route: 065
     Dates: start: 20041209
  2. AVASTIN [Suspect]
     Route: 065
     Dates: start: 20041222

REACTIONS (6)
  - Death [Fatal]
  - Squamous cell carcinoma [Unknown]
  - Metastases to lung [Unknown]
  - Chronic lymphocytic leukaemia [Unknown]
  - Thrombocytopenia [Unknown]
  - Neuroendocrine carcinoma of the skin [Unknown]
